FAERS Safety Report 24556076 (Version 3)
Quarter: 2025Q2

REPORT INFORMATION
  Report Type: Report from Study
  Country: US (occurrence: US)
  Receive Date: 20241028
  Receipt Date: 20250410
  Transmission Date: 20250717
  Serious: Yes (Other)
  Sender: UCB
  Company Number: US-UCBSA-2024055032

PATIENT
  Age: 21 Year
  Sex: Female
  Weight: 53 kg

DRUGS (1)
  1. FINTEPLA [Suspect]
     Active Substance: FENFLURAMINE
     Indication: Product used for unknown indication
     Dosage: 5.9 MILLILITER, 2X/DAY (BID)
     Dates: start: 2023

REACTIONS (1)
  - Tricuspid valve incompetence [Unknown]

NARRATIVE: CASE EVENT DATE: 20241016
